FAERS Safety Report 17088974 (Version 3)
Quarter: 2020Q1

REPORT INFORMATION
  Report Type: Report from Study
  Country: None (occurrence: US)
  Receive Date: 20191128
  Receipt Date: 20200321
  Transmission Date: 20200409
  Serious: Yes (Other)
  Sender: FDA-Public Use
  Company Number: US-ABBVIE-19K-163-3145834-00

PATIENT
  Age: 72 Year
  Sex: Male

DRUGS (3)
  1. IMBRUVICA [Suspect]
     Active Substance: IBRUTINIB
     Indication: CHRONIC LYMPHOCYTIC LEUKAEMIA
     Dosage: 420 MG, QD
     Route: 048
     Dates: start: 2018
  2. IMBRUVICA [Suspect]
     Active Substance: IBRUTINIB
     Dosage: 420 MG, QD
     Route: 048
  3. IMBRUVICA [Suspect]
     Active Substance: IBRUTINIB
     Indication: CHRONIC LYMPHOCYTIC LEUKAEMIA
     Dosage: 420 MG, QD
     Route: 048
     Dates: start: 20161214

REACTIONS (22)
  - Arthropathy [Unknown]
  - Diarrhoea [Recovering/Resolving]
  - Rash pruritic [Not Recovered/Not Resolved]
  - Gait disturbance [Not Recovered/Not Resolved]
  - Synovial cyst [Not Recovered/Not Resolved]
  - Hypersensitivity [Not Recovered/Not Resolved]
  - Pharyngitis streptococcal [Recovered/Resolved]
  - Product dose omission [Unknown]
  - Gastrointestinal disorder [Not Recovered/Not Resolved]
  - Arthropathy [Not Recovered/Not Resolved]
  - Nausea [Not Recovered/Not Resolved]
  - Pyrexia [Recovered/Resolved]
  - Muscular weakness [Not Recovered/Not Resolved]
  - Ligament sprain [Not Recovered/Not Resolved]
  - Blood cholesterol increased [Not Recovered/Not Resolved]
  - Weight decreased [Not Recovered/Not Resolved]
  - Onychoclasis [Not Recovered/Not Resolved]
  - Joint swelling [Recovered/Resolved]
  - Gastric disorder [Not Recovered/Not Resolved]
  - Nail bed bleeding [Recovering/Resolving]
  - Dizziness [Not Recovered/Not Resolved]
  - Crystal arthropathy [Unknown]

NARRATIVE: CASE EVENT DATE: 20200210
